FAERS Safety Report 25041305 (Version 2)
Quarter: 2025Q3

REPORT INFORMATION
  Report Type: Spontaneous
  Country: JP (occurrence: JP)
  Receive Date: 20250305
  Receipt Date: 20250724
  Transmission Date: 20251021
  Serious: No
  Sender: GALDERMA
  Company Number: JP-GALDERMA-JP2025002863

PATIENT

DRUGS (1)
  1. NEMOLIZUMAB [Suspect]
     Active Substance: NEMOLIZUMAB
     Indication: Product used for unknown indication
     Route: 058

REACTIONS (1)
  - Erythema [Recovered/Resolved]
